FAERS Safety Report 7580604-8 (Version None)
Quarter: 2011Q2

REPORT INFORMATION
  Report Type: 
  Country: None (occurrence: None)
  Receive Date: 20110629
  Receipt Date: 20110621
  Transmission Date: 20111010
  Serious: Yes (Death, Life-Threatening)
  Sender: FDA-Public Use
  Company Number: B0729196A

PATIENT
  Sex: Female
  Weight: 69 kg

DRUGS (5)
  1. TEMODAL [Suspect]
     Route: 048
  2. PREDNISOLONE [Concomitant]
     Indication: NAUSEA
     Dates: start: 20110512
  3. TEMODAL [Suspect]
     Route: 048
     Dates: start: 20110412, end: 20110515
  4. ONDANSETRON [Suspect]
     Indication: NAUSEA
     Dosage: 8MG THREE TIMES PER DAY
     Route: 048
     Dates: start: 20110512
  5. MORPHINE [Concomitant]
     Indication: PAIN

REACTIONS (3)
  - SEPTIC SHOCK [None]
  - LARGE INTESTINE PERFORATION [None]
  - PERITONITIS [None]
